FAERS Safety Report 8576698-3 (Version None)
Quarter: 2012Q3

REPORT INFORMATION
  Report Type: 
  Country: None (occurrence: None)
  Receive Date: 20120807
  Receipt Date: 20120731
  Transmission Date: 20120928
  Serious: Yes (Life-Threatening, Hospitalization, Disabling, Other)
  Sender: FDA-Public Use
  Company Number: US-GLAXOSMITHKLINE-A0987713A

PATIENT
  Age: 26 Year
  Sex: Female

DRUGS (5)
  1. ABILIFY [Concomitant]
  2. UNSPECIFIED MEDICATION [Concomitant]
  3. WELLBUTRIN [Concomitant]
  4. LAMICTAL [Suspect]
     Indication: BIPOLAR DISORDER
     Dosage: 400MG AT NIGHT
     Route: 048
     Dates: start: 20080101, end: 20120728
  5. LITHIUM CARBONATE [Concomitant]

REACTIONS (13)
  - SPLENOMEGALY [None]
  - PNEUMONIA [None]
  - EOSINOPHIL PERCENTAGE INCREASED [None]
  - HAEMATEMESIS [None]
  - HAEMOGLOBIN DECREASED [None]
  - HEPATOMEGALY [None]
  - WHITE BLOOD CELL COUNT INCREASED [None]
  - ANAEMIA [None]
  - MYOSITIS [None]
  - PYREXIA [None]
  - CARDIOMYOPATHY [None]
  - MYALGIA [None]
  - MENTAL STATUS CHANGES [None]
